FAERS Safety Report 23875708 (Version 1)
Quarter: 2024Q2

REPORT INFORMATION
  Report Type: Report from Study
  Country: PH (occurrence: PH)
  Receive Date: 20240520
  Receipt Date: 20240520
  Transmission Date: 20240716
  Serious: Yes (Death)
  Sender: FDA-Public Use
  Company Number: PH-OTSUKA-2024_011136

PATIENT
  Sex: Female

DRUGS (1)
  1. TOLVAPTAN [Suspect]
     Active Substance: TOLVAPTAN
     Indication: Oedema
     Dosage: 0.5 DF, QD (15 MG HALF TABLET A DAY)
     Route: 048
     Dates: start: 20240409, end: 20240429

REACTIONS (5)
  - Haematological infection [Fatal]
  - Anaemia [Fatal]
  - Renal impairment [Fatal]
  - Wrong technique in product usage process [Unknown]
  - Underdose [Unknown]
